FAERS Safety Report 4376029-9 (Version None)
Quarter: 2004Q2

REPORT INFORMATION
  Report Type: 
  Country: None (occurrence: None)
  Receive Date: 20040611
  Receipt Date: 20040514
  Transmission Date: 20050107
  Serious: Yes (Hospitalization, Disabling)
  Sender: FDA-Public Use
  Company Number: JP-MERCK-0405USA01271

PATIENT
  Age: 28 Year
  Sex: Male

DRUGS (1)
  1. PEPCID [Suspect]
     Indication: REFLUX OESOPHAGITIS
     Route: 048
     Dates: start: 20030401, end: 20040301

REACTIONS (4)
  - COLITIS ULCERATIVE [None]
  - LYMPHOCYTE STIMULATION TEST POSITIVE [None]
  - NEPHRITIS INTERSTITIAL [None]
  - PYREXIA [None]
